FAERS Safety Report 7204484-5 (Version None)
Quarter: 2010Q4

REPORT INFORMATION
  Report Type: 
  Country: None (occurrence: None)
  Receive Date: 20101220
  Receipt Date: 20101207
  Transmission Date: 20110411
  Serious: Yes (Other)
  Sender: FDA-Public Use
  Company Number: 2010P1003094

PATIENT
  Age: 69 Year
  Sex: Male
  Weight: 59.7 kg

DRUGS (18)
  1. ULTIVA [Suspect]
     Indication: ANALGESIC THERAPY
     Dosage: 1749.21 MCG; X2; IV
     Route: 042
     Dates: start: 20100330, end: 20100330
  2. SEVORANE LIQUID FOR INHALATION (NO PREF. NAME) [Suspect]
     Indication: SEDATIVE THERAPY
     Dosage: 1 %;X1; INH
     Route: 055
     Dates: start: 20100330, end: 20100330
  3. ZYPREXA [Suspect]
     Indication: SCHIZOPHRENIA
     Dosage: 10 MG; QD; PO
     Route: 048
     Dates: end: 20100329
  4. ROHYPNOL (NO PREF. NAME) [Suspect]
     Indication: SCHIZOPHRENIA
     Dosage: 1 MG; BID; PO
     Route: 048
     Dates: end: 20100329
  5. LINTON FGR (NO PREF. NAME) [Suspect]
     Indication: SCHIZOPHRENIA
     Dosage: 0.3 MG;TID; PO
     Route: 048
     Dates: end: 20100329
  6. RISPERDAL [Suspect]
     Indication: SCHIZOPHRENIA
     Dosage: 0.5 GM;TID;PO
     Route: 048
     Dates: end: 20100329
  7. TASMOLIN POW (NO PREF. NAME) [Suspect]
     Indication: SCHIZOPHRENIA
     Dosage: 0.3 GM;TID;PO
     Route: 048
     Dates: end: 20100329
  8. PROPOFOL [Concomitant]
  9. ROCURONIUM BROMIDE [Concomitant]
  10. BROMIDE [Concomitant]
  11. HYDROCORTISONE SODIUM [Concomitant]
  12. PHOSPHATE [Concomitant]
  13. ROPIVACAINE HYDROCHLORIDE [Concomitant]
  14. FENTANYL CITRATE [Concomitant]
  15. RED BLOOD CELLS [Concomitant]
  16. FRESH FROZEN PLASMA [Concomitant]
  17. FAMOTIDINE [Concomitant]
  18. DOPAMINE HYDROCHLORIDE [Concomitant]

REACTIONS (4)
  - CARDIAC FAILURE [None]
  - HYPOTENSION [None]
  - OPERATIVE HAEMORRHAGE [None]
  - PROCEDURAL COMPLICATION [None]
